FAERS Safety Report 4726529-4 (Version None)
Quarter: 2005Q3

REPORT INFORMATION
  Report Type: 
  Country: None (occurrence: None)
  Receive Date: 20050727
  Receipt Date: 20050623
  Transmission Date: 20060218
  Serious: Yes (Hospitalization)
  Sender: FDA-Public Use
  Company Number: US-MERCK-0506USA03643

PATIENT
  Age: 54 Year
  Sex: Male
  Weight: 70 kg

DRUGS (14)
  1. DOXORUBICIN HCL [Concomitant]
     Route: 065
     Dates: start: 20040310
  2. DOXORUBICIN [Concomitant]
     Route: 065
     Dates: start: 20040716
  3. STROMECTOL [Suspect]
     Indication: STRONGYLOIDIASIS
     Route: 048
     Dates: start: 20040614, end: 20040614
  4. STROMECTOL [Suspect]
     Route: 048
     Dates: start: 20040615, end: 20040616
  5. STROMECTOL [Suspect]
     Route: 048
     Dates: start: 20040629, end: 20040629
  6. STROMECTOL [Suspect]
     Route: 048
  7. STROMECTOL [Suspect]
     Route: 048
     Dates: start: 20040701, end: 20040801
  8. DECADRON [Suspect]
     Indication: HUMAN T-CELL LYMPHOTROPIC VIRUS TYPE I INFECTION
     Route: 065
     Dates: start: 20040310, end: 20040601
  9. DECADRON [Suspect]
     Route: 048
     Dates: start: 20040610, end: 20040616
  10. STROMECTOL [Suspect]
     Route: 058
     Dates: start: 20040617, end: 20040617
  11. STROMECTOL [Suspect]
     Route: 058
     Dates: start: 20040619, end: 20040619
  12. STROMECTOL [Suspect]
     Route: 058
     Dates: start: 20040622, end: 20040622
  13. ALCOHOL [Concomitant]
     Indication: STRONGYLOIDIASIS
     Route: 048
     Dates: start: 20040615, end: 20040616
  14. ZOLEDRONIC ACID [Concomitant]
     Route: 065
     Dates: start: 20040310

REACTIONS (16)
  - ANOREXIA [None]
  - BLOOD CALCIUM DECREASED [None]
  - COUGH [None]
  - DEEP VEIN THROMBOSIS [None]
  - DRUG INEFFECTIVE [None]
  - HEADACHE [None]
  - HERPES SIMPLEX [None]
  - LETHARGY [None]
  - MEDICATION ERROR [None]
  - OESOPHAGEAL CANDIDIASIS [None]
  - ORAL CANDIDIASIS [None]
  - PAIN [None]
  - PYREXIA [None]
  - STAPHYLOCOCCAL INFECTION [None]
  - STRONGYLOIDIASIS [None]
  - THROMBOCYTOPENIA [None]
